FAERS Safety Report 10409848 (Version 1)
Quarter: 2014Q2

REPORT INFORMATION
  Report Type: Spontaneous
  Country: US (occurrence: None)
  Receive Date: 20140604
  Receipt Date: 20140604
  Transmission Date: 20141212
  Serious: No
  Sender: FDA-Public Use
  Company Number: 163-POMAL-14043862

PATIENT
  Age: 72 Year
  Sex: Male

DRUGS (10)
  1. POMALYST (POMALIDOMIDE) (1 MILLIGRAM, CAPSULES) [Suspect]
     Indication: PLASMA CELL MYELOMA
     Dosage: 1 MG, 21 IN 28 D, PO
     Route: 048
     Dates: start: 20140314, end: 2014
  2. CARFILZOMIB [Concomitant]
  3. DEXAMETHASONE [Concomitant]
  4. FLUCONAZOLE [Concomitant]
  5. RANITIDINE [Concomitant]
  6. SULFAMETHOXAZOLE/TRIMETHOPRIM (BACTRIM) (SULFAMETHOXAZOLE, TRIMETHOPRIM) [Concomitant]
  7. EPOETIN (EPOETIN ALFA) [Concomitant]
  8. ACYCLOVIR (ACICLOVIR) (ACICLOVIR) [Concomitant]
  9. ONDANSETRON [Concomitant]
  10. ASA (ACETYLSALICYLIC ACID) [Concomitant]

REACTIONS (1)
  - Fluid retention [None]
